FAERS Safety Report 12159816 (Version 1)
Quarter: 2016Q1

REPORT INFORMATION
  Report Type: Spontaneous
  Country: CH (occurrence: CH)
  Receive Date: 20160308
  Receipt Date: 20160308
  Transmission Date: 20160526
  Serious: Yes (Life-Threatening, Hospitalization)
  Sender: FDA-Public Use
  Company Number: CH-TEVA-638748ISR

PATIENT
  Age: 50 Year
  Sex: Male

DRUGS (8)
  1. RISPERIDON-MEPHA [Suspect]
     Active Substance: RISPERIDONE
     Indication: MENTAL DISORDER
     Route: 048
     Dates: start: 2002
  2. RISPERIDON-MEPHA [Suspect]
     Active Substance: RISPERIDONE
     Dosage: UNSPECIFIED STRENGTH, 2-3MG
     Route: 048
     Dates: start: 2006
  3. RISPERIDON-MEPHA [Suspect]
     Active Substance: RISPERIDONE
     Route: 048
     Dates: end: 20140731
  4. RISPERIDON-MEPHA [Suspect]
     Active Substance: RISPERIDONE
     Dosage: UNSPECIFIED STRENGTH, 2-3MG
     Route: 048
     Dates: start: 2003
  5. GLUCOPHAGE [Suspect]
     Active Substance: METFORMIN HYDROCHLORIDE
     Dosage: 1000 MILLIGRAM DAILY;
     Route: 065
     Dates: start: 2006
  6. RISPERIDON-MEPHA [Suspect]
     Active Substance: RISPERIDONE
     Route: 048
     Dates: start: 20140731, end: 201501
  7. INDERAL [Concomitant]
     Active Substance: PROPRANOLOL HYDROCHLORIDE
     Dosage: 160 MILLIGRAM DAILY;
     Route: 065
     Dates: start: 2006
  8. RELAXANE [Concomitant]
     Dosage: 1 DOSAGE FORMS DAILY;
     Route: 065
     Dates: end: 20150118

REACTIONS (4)
  - Polydipsia [Unknown]
  - Vomiting [Unknown]
  - Polyuria [Unknown]
  - Pancytopenia [Unknown]

NARRATIVE: CASE EVENT DATE: 20150118
